FAERS Safety Report 9760321 (Version 2)
Quarter: 2015Q3

REPORT INFORMATION
  Report Type: Spontaneous
  Country: US (occurrence: US)
  Receive Date: 20131216
  Receipt Date: 20150806
  Transmission Date: 20151125
  Serious: No
  Sender: FDA-Public Use
  Company Number: US-GILEAD-2010-0029189

PATIENT
  Age: 82 Year
  Sex: Female
  Weight: 95.25 kg

DRUGS (17)
  1. LETAIRIS [Suspect]
     Active Substance: AMBRISENTAN
     Indication: PULMONARY ARTERIAL HYPERTENSION
     Route: 048
     Dates: start: 20081128
  2. ALLOPURINOL. [Concomitant]
     Active Substance: ALLOPURINOL
  3. MULTIVITAMIN [Concomitant]
     Active Substance: VITAMINS
  4. POTASSIUM CHLORIDE. [Concomitant]
     Active Substance: POTASSIUM CHLORIDE
  5. FISH OIL [Concomitant]
     Active Substance: FISH OIL
  6. VITAMIN B12 [Concomitant]
     Active Substance: CYANOCOBALAMIN
  7. ARANESP [Concomitant]
     Active Substance: DARBEPOETIN ALFA
  8. METOLAZONE. [Concomitant]
     Active Substance: METOLAZONE
  9. ASPIRIN. [Concomitant]
     Active Substance: ASPIRIN
  10. CALCIUM [Concomitant]
     Active Substance: CALCIUM
  11. LASIX [Concomitant]
     Active Substance: FUROSEMIDE
  12. ROBAXIN [Concomitant]
     Active Substance: METHOCARBAMOL
  13. AMBIEN [Concomitant]
     Active Substance: ZOLPIDEM TARTRATE
  14. RIBOFLAVIN [Concomitant]
     Active Substance: RIBOFLAVIN
  15. AMOXICILLIN. [Concomitant]
     Active Substance: AMOXICILLIN
  16. METOPROLOL [Concomitant]
     Active Substance: METOPROLOL
  17. ISOSORBIDE DN [Concomitant]

REACTIONS (1)
  - Neuralgia [Unknown]
